FAERS Safety Report 9664673 (Version 2)
Quarter: 2013Q4

REPORT INFORMATION
  Report Type: Spontaneous
  Country: US (occurrence: US)
  Receive Date: 20131101
  Receipt Date: 20131101
  Transmission Date: 20140711
  Serious: Yes (Other)
  Sender: FDA-Public Use
  Company Number: US-INCYTE CORPORATION-2013IN000476

PATIENT
  Age: 82 Year
  Sex: Female
  Weight: 51.7 kg

DRUGS (10)
  1. JAKAFI [Suspect]
     Indication: MYELOFIBROSIS
     Dosage: 15 MG, BID
     Route: 048
     Dates: start: 20120116
  2. JAKAFI [Suspect]
     Indication: POLYCYTHAEMIA
     Dosage: 15 MG, BID
     Route: 048
     Dates: start: 20120127, end: 20130920
  3. NORVASC [Suspect]
  4. TOPROL [Suspect]
  5. LASIX [Concomitant]
  6. COUMADIN [Concomitant]
     Indication: THROMBOSIS
  7. HYDREA [Concomitant]
  8. IMODIUM A-D [Concomitant]
     Indication: DIARRHOEA
  9. ATIVAN [Concomitant]
  10. OMEPRAZOLE [Concomitant]

REACTIONS (6)
  - Weight increased [Not Recovered/Not Resolved]
  - Thrombosis [Not Recovered/Not Resolved]
  - Syncope [Not Recovered/Not Resolved]
  - Gait disturbance [Not Recovered/Not Resolved]
  - Diarrhoea [Not Recovered/Not Resolved]
  - Dizziness [Not Recovered/Not Resolved]
